FAERS Safety Report 9246854 (Version 2)
Quarter: 2013Q2

REPORT INFORMATION
  Report Type: Other
  Country: GB (occurrence: GB)
  Receive Date: 20130422
  Receipt Date: 20130507
  Transmission Date: 20140414
  Serious: Yes (Other)
  Sender: FDA-Public Use
  Company Number: GB-WATSON-2013-06741

PATIENT
  Age: 67 Year
  Sex: Male

DRUGS (3)
  1. RAMIPRIL (UNKNOWN) [Suspect]
     Indication: CARDIAC DISORDER
     Dosage: 2.5 MG, DAILY
     Route: 048
  2. RAMIPRIL (UNKNOWN) [Suspect]
     Indication: BLOOD PRESSURE FLUCTUATION
     Dosage: RESTARTED BY PATIENT
     Route: 065
  3. BISOPROLOL [Concomitant]
     Indication: PRODUCT USED FOR UNKNOWN INDICATION
     Route: 065

REACTIONS (1)
  - Haemorrhoidal haemorrhage [Not Recovered/Not Resolved]
